FAERS Safety Report 15847394 (Version 2)
Quarter: 2019Q1

REPORT INFORMATION
  Report Type: Spontaneous
  Country: DE (occurrence: DE)
  Receive Date: 20190121
  Receipt Date: 20190128
  Transmission Date: 20190417
  Serious: Yes (Other)
  Sender: FDA-Public Use
  Company Number: DE-AUROBINDO-AUR-APL-2019-002251

PATIENT
  Age: 85 Year
  Sex: Female

DRUGS (3)
  1. RISEDRONATE [Suspect]
     Active Substance: RISEDRONATE SODIUM
     Indication: OSTEOPOROSIS
     Dosage: UNK
     Route: 048
     Dates: start: 2005, end: 2009
  2. DENOSUMAB [Suspect]
     Active Substance: DENOSUMAB
     Indication: OSTEOPOROSIS
     Dosage: 60 MICROGRAM ONCE, EVERY 6 MONTH, 3 DOSES
     Route: 065
     Dates: start: 201109
  3. ALENDRONIC ACID TABLETS [Suspect]
     Active Substance: ALENDRONIC ACID
     Indication: OSTEOPOROSIS
     Dosage: UNK
     Route: 048
     Dates: end: 2005

REACTIONS (1)
  - Osteonecrosis of jaw [Recovered/Resolved]
